FAERS Safety Report 7668056 (Version 4)
Quarter: 2015Q4

REPORT INFORMATION
  Report Type: Spontaneous
  Country: US (occurrence: US)
  Receive Date: 20101115
  Receipt Date: 20151124
  Transmission Date: 20160305
  Serious: Yes (Hospitalization, Other)
  Sender: FDA-Public Use
  Company Number: US-BAYER-201040785NA

PATIENT
  Age: 23 Year
  Sex: Female
  Weight: 43.99 kg

DRUGS (8)
  1. YAZ [Suspect]
     Active Substance: DROSPIRENONE\ETHINYL ESTRADIOL
     Indication: CONTRACEPTION
     Dosage: UNK
     Route: 048
     Dates: start: 200612, end: 200704
  2. ENALAPRIL [Concomitant]
     Active Substance: ENALAPRIL
     Indication: HEART DISEASE CONGENITAL
     Dosage: 5 MG, HS
     Route: 048
     Dates: start: 2002, end: 2007
  3. YAZ [Suspect]
     Active Substance: DROSPIRENONE\ETHINYL ESTRADIOL
     Indication: PREMENSTRUAL SYNDROME
  4. YAZ [Suspect]
     Active Substance: DROSPIRENONE\ETHINYL ESTRADIOL
     Indication: MENORRHAGIA
  5. NITROGLYCERIN. [Concomitant]
     Active Substance: NITROGLYCERIN
     Dosage: UNK
     Dates: start: 20070415
  6. YAZ [Suspect]
     Active Substance: DROSPIRENONE\ETHINYL ESTRADIOL
     Indication: ACNE
  7. ASPIRIN. [Concomitant]
     Active Substance: ASPIRIN
     Indication: HEART DISEASE CONGENITAL
     Dosage: 81 MG, QD
     Route: 048
     Dates: start: 2000
  8. VASOTEC [Concomitant]
     Active Substance: ENALAPRIL MALEATE

REACTIONS (4)
  - Myocardial infarction [Unknown]
  - Transient ischaemic attack [Unknown]
  - Embolism arterial [None]
  - Embolic stroke [Unknown]

NARRATIVE: CASE EVENT DATE: 200704
